FAERS Safety Report 6628612-5 (Version None)
Quarter: 2010Q1

REPORT INFORMATION
  Report Type: 
  Country: None (occurrence: None)
  Receive Date: 20100225
  Receipt Date: 20091216
  Transmission Date: 20100710
  Serious: Yes (Other)
  Sender: FDA-Public Use
  Company Number: 675225

PATIENT
  Sex: Female

DRUGS (3)
  1. ACCUTANE [Suspect]
     Indication: DRUG USE FOR UNKNOWN INDICATION
     Dates: start: 20041001, end: 20041101
  2. AMNESTEEM [Suspect]
     Indication: ACNE
     Dates: start: 20050401
  3. SOTRET [Suspect]
     Indication: ACNE
     Dates: start: 20050501, end: 20050701

REACTIONS (1)
  - INFLAMMATORY BOWEL DISEASE [None]
